FAERS Safety Report 19279536 (Version 1)
Quarter: 2021Q2

REPORT INFORMATION
  Report Type: Report from Study
  Country: None (occurrence: DE)
  Receive Date: 20210520
  Receipt Date: 20210520
  Transmission Date: 20210717
  Serious: Yes (Other)
  Sender: FDA-Public Use
  Company Number: DE-ABBVIE-21K-062-3839311-00

PATIENT
  Age: 34 Year
  Sex: Female

DRUGS (3)
  1. RINVOQ [Suspect]
     Active Substance: UPADACITINIB
     Route: 048
     Dates: start: 20210406, end: 20210424
  2. RINVOQ [Suspect]
     Active Substance: UPADACITINIB
     Route: 048
     Dates: start: 20210428, end: 20210429
  3. RINVOQ [Suspect]
     Active Substance: UPADACITINIB
     Indication: RHEUMATOID ARTHRITIS
     Route: 048
     Dates: start: 20210119, end: 20210322

REACTIONS (9)
  - Inflammatory marker increased [Unknown]
  - Pyrexia [Recovered/Resolved]
  - Pulpitis dental [Recovered/Resolved]
  - Pyrexia [Recovered/Resolved]
  - Rheumatic disorder [Not Recovered/Not Resolved]
  - Pulpitis dental [Recovered/Resolved]
  - Pulpitis dental [Not Recovered/Not Resolved]
  - Rheumatic disorder [Not Recovered/Not Resolved]
  - Tooth disorder [Unknown]

NARRATIVE: CASE EVENT DATE: 2021
